FAERS Safety Report 23665057 (Version 2)
Quarter: 2024Q2

REPORT INFORMATION
  Report Type: Spontaneous
  Country: US (occurrence: US)
  Receive Date: 20240322
  Receipt Date: 20240520
  Transmission Date: 20240715
  Serious: No
  Sender: FDA-Public Use
  Company Number: US-BAUSCH-BL-2024-004365

PATIENT
  Age: 42 Year
  Sex: Female

DRUGS (1)
  1. TRETINOIN [Suspect]
     Active Substance: TRETINOIN
     Indication: Product used for unknown indication
     Route: 065

REACTIONS (4)
  - Application site irritation [Unknown]
  - Product physical consistency issue [Unknown]
  - Poor quality product administered [Unknown]
  - Drug delivery system issue [Unknown]
